FAERS Safety Report 5121705-3 (Version None)
Quarter: 2006Q4

REPORT INFORMATION
  Report Type: 
  Country: None (occurrence: None)
  Receive Date: 20061006
  Receipt Date: 20061002
  Transmission Date: 20070319
  Serious: Yes (Other)
  Sender: FDA-Public Use
  Company Number: FI-GLAXOSMITHKLINE-B0441032A

PATIENT
  Age: 70 Year
  Sex: Male

DRUGS (3)
  1. AVODART [Suspect]
     Indication: DRUG USE FOR UNKNOWN INDICATION
     Route: 065
  2. PULMICORT [Concomitant]
     Route: 065
  3. SINGULAIR [Concomitant]
     Route: 065

REACTIONS (5)
  - ASTHMA [None]
  - DYSPNOEA [None]
  - PAIN [None]
  - PRURITUS [None]
  - SECRETION DISCHARGE [None]
